FAERS Safety Report 8333052-7 (Version None)
Quarter: 2012Q1

REPORT INFORMATION
  Report Type: 
  Country: None (occurrence: None)
  Receive Date: 20120327
  Receipt Date: 20110412
  Transmission Date: 20120608
  Serious: Yes (Hospitalization)
  Sender: FDA-Public Use
  Company Number: PHHY2011US07375

PATIENT
  Age: 7 Year
  Sex: Female
  Weight: 21.4 kg

DRUGS (6)
  1. GLEEVEC [Suspect]
     Indication: ACUTE LYMPHOCYTIC LEUKAEMIA
     Dosage: 300 MG, QD, ORAL
     Route: 048
     Dates: start: 20100906
  2. MEGACE [Concomitant]
  3. GAS X (SIMETICONE) [Concomitant]
  4. NEUPOGEN [Concomitant]
  5. CALCIUM CARBONATE [Concomitant]
  6. PEPCID [Concomitant]

REACTIONS (3)
  - PYREXIA [None]
  - KLEBSIELLA SEPSIS [None]
  - CHILLS [None]
